FAERS Safety Report 8839326 (Version 2)
Quarter: 2012Q4

REPORT INFORMATION
  Report Type: 
  Country: AU (occurrence: AU)
  Receive Date: 20121015
  Receipt Date: 20121217
  Transmission Date: 20130627
  Serious: Yes (Death)
  Sender: FDA-Public Use
  Company Number: AU-JNJFOC-20121007626

PATIENT
  Sex: Male
  Weight: 30 kg

DRUGS (2)
  1. DUROGESIC [Suspect]
     Indication: PAIN
     Route: 062
  2. DUROGESIC [Suspect]
     Indication: MUSCULAR DYSTROPHY
     Route: 062

REACTIONS (1)
  - Drug level increased [Fatal]
